FAERS Safety Report 4478909-2 (Version None)
Quarter: 2004Q4

REPORT INFORMATION
  Report Type: 
  Country: None (occurrence: None)
  Receive Date: 20041018
  Receipt Date: 20040930
  Transmission Date: 20050328
  Serious: Yes (Other)
  Sender: FDA-Public Use
  Company Number: 002#1#2004-00228 (0)

PATIENT
  Age: 44 Year
  Sex: Female

DRUGS (1)
  1. LEVSIN PB [Suspect]
     Indication: IRRITABLE BOWEL SYNDROME
     Dosage: .125 MG, 4 IN 1 D, ORAL
     Route: 048
     Dates: start: 20040101, end: 20040101

REACTIONS (2)
  - DYSTONIA [None]
  - RASH [None]
